FAERS Safety Report 12680506 (Version 3)
Quarter: 2019Q3

REPORT INFORMATION
  Report Type: Report from Study
  Country: AR (occurrence: AR)
  Receive Date: 20160824
  Receipt Date: 20190725
  Transmission Date: 20191004
  Serious: Yes (Other)
  Sender: FDA-Public Use
  Company Number: PHHY2016AR108043

PATIENT
  Age: 2 Year
  Sex: Male

DRUGS (4)
  1. EXJADE [Suspect]
     Active Substance: DEFERASIROX
     Dosage: 250 MG ONE DAY AND THE OTHER DAY 500 MG
     Route: 065
     Dates: start: 2016
  2. EXJADE [Suspect]
     Active Substance: DEFERASIROX
     Dosage: 750 MG, QD
     Route: 065
     Dates: start: 201811
  3. EXJADE [Suspect]
     Active Substance: DEFERASIROX
     Indication: THALASSAEMIA
     Dosage: 250 MG, QD
     Route: 065
     Dates: start: 20160425
  4. EXJADE [Suspect]
     Active Substance: DEFERASIROX
     Dosage: 750 MG, QD
     Route: 065
     Dates: end: 201805

REACTIONS (9)
  - Ear infection [Recovered/Resolved]
  - Secretion discharge [Recovered/Resolved]
  - Skin lesion [Unknown]
  - Serum ferritin increased [Not Recovered/Not Resolved]
  - Product dispensing error [Unknown]
  - Pyrexia [Recovered/Resolved]
  - Malaise [Not Recovered/Not Resolved]
  - Pneumonia [Recovered/Resolved]
  - Skin reaction [Recovered/Resolved]

NARRATIVE: CASE EVENT DATE: 20160804
